FAERS Safety Report 8584721 (Version 2)
Quarter: 2014Q1

REPORT INFORMATION
  Report Type: Spontaneous
  Country: US (occurrence: None)
  Receive Date: 20120323
  Receipt Date: 20130305
  Transmission Date: 20141002
  Serious: Yes (Hospitalization, Other)
  Sender: FDA-Public Use
  Company Number: 163-21880-11032453

PATIENT
  Age: 82 Year
  Sex: Female

DRUGS (11)
  1. REVLIMID [Suspect]
     Indication: PLASMA CELL MYELOMA
     Dosage: 10 MG, DAILY X 21 DAYS, PO
     Route: 048
     Dates: start: 20101001, end: 201101
  2. LOPRESSOR (METOPROLOL TARTRATE) [Concomitant]
  3. ATIVAN [Concomitant]
  4. PREDNISONE (PREDNISONE) [Concomitant]
  5. CEFTRIAXONE (CEFTRIAXONE) [Concomitant]
  6. IMIPENEM (IMIPENEM) [Concomitant]
  7. NORVASC (AMLODIPINE BESILATE) [Concomitant]
  8. IVIG [Concomitant]
  9. RED BLOOD CELLS (RED BLOOD CELLS) [Concomitant]
  10. NOVOLOG (INSULIN ASPART) [Concomitant]
  11. DEXAMETHASONE [Suspect]

REACTIONS (2)
  - Appendicitis [None]
  - Deep vein thrombosis [None]
